FAERS Safety Report 6461790-X (Version None)
Quarter: 2009Q4

REPORT INFORMATION
  Report Type: 
  Country: None (occurrence: None)
  Receive Date: 20091130
  Receipt Date: 20091118
  Transmission Date: 20100525
  Serious: Yes (Other)
  Sender: FDA-Public Use
  Company Number: PHHY2009BR49169

PATIENT
  Age: 36 Year
  Sex: Male
  Weight: 115 kg

DRUGS (2)
  1. DIOVAN [Suspect]
     Indication: HYPERTENSION
     Dosage: 1 TABLET DAILY
     Route: 048
     Dates: start: 20080101
  2. SIBUTRAMINE [Concomitant]

REACTIONS (5)
  - DIZZINESS [None]
  - EAR DISCOMFORT [None]
  - SOMNOLENCE [None]
  - TINNITUS [None]
  - WEIGHT DECREASED [None]
